FAERS Safety Report 6012394-4 (Version None)
Quarter: 2008Q4

REPORT INFORMATION
  Report Type: 
  Country: None (occurrence: None)
  Receive Date: 20081218
  Receipt Date: 20081002
  Transmission Date: 20090506
  Serious: No
  Sender: FDA-Public Use
  Company Number: US-ASTRAZENECA-2008UW21536

PATIENT
  Age: 80 Year
  Sex: Female

DRUGS (3)
  1. SYMBICORT [Suspect]
     Indication: DYSPNOEA
     Dosage: 160/4.5 ONE PUFF TWICE A DAY
     Route: 055
     Dates: start: 20080901
  2. PREDNISONE TAB [Concomitant]
  3. UNSPECIFIED STEROIDS [Concomitant]

REACTIONS (8)
  - CHEST PAIN [None]
  - DYSPHONIA [None]
  - HEADACHE [None]
  - INCORRECT DOSE ADMINISTERED [None]
  - PRURITUS [None]
  - SINUS DISORDER [None]
  - VISION BLURRED [None]
  - WEIGHT INCREASED [None]
